FAERS Safety Report 16085171 (Version 2)
Quarter: 2019Q2

REPORT INFORMATION
  Report Type: Report from Study
  Country: US (occurrence: US)
  Receive Date: 20190318
  Receipt Date: 20190405
  Transmission Date: 20190711
  Serious: Yes (Death, Other)
  Sender: FDA-Public Use
  Company Number: US-JNJFOC-20190317432

PATIENT

DRUGS (1)
  1. IBRUTINIB [Suspect]
     Active Substance: IBRUTINIB
     Indication: WALDENSTROM^S MACROGLOBULINAEMIA
     Route: 048

REACTIONS (16)
  - Gastrointestinal haemorrhage [Recovered/Resolved]
  - Hepatic enzyme increased [Unknown]
  - Diarrhoea [Unknown]
  - Thrombocytopenia [Unknown]
  - Rash vesicular [Recovered/Resolved]
  - Haemorrhage [Unknown]
  - Neuropathy peripheral [Unknown]
  - Localised infection [Unknown]
  - Fatigue [Unknown]
  - Drug intolerance [Unknown]
  - Cognitive disorder [Unknown]
  - Neutropenia [Unknown]
  - Anaemia [Unknown]
  - Headache [Unknown]
  - Death [Fatal]
  - Atrial fibrillation [Unknown]
